FAERS Safety Report 11414663 (Version 4)
Quarter: 2015Q3

REPORT INFORMATION
  Report Type: Report from Study
  Country: IE (occurrence: IE)
  Receive Date: 20150825
  Receipt Date: 20150929
  Transmission Date: 20151125
  Serious: Yes (Hospitalization, Other)
  Sender: FDA-Public Use
  Company Number: IE-AMGEN-IRLCT2015086177

PATIENT
  Age: 33 Year
  Sex: Male
  Weight: 62.6 kg

DRUGS (24)
  1. PREGABALIN. [Concomitant]
     Active Substance: PREGABALIN
     Dosage: 75 MG, UNK
     Route: 048
     Dates: start: 20150703
  2. LINEZOLID. [Concomitant]
     Active Substance: LINEZOLID
     Dosage: 600 MG, UNK
     Route: 042
     Dates: start: 20150722, end: 20150724
  3. LEXAPRO [Concomitant]
     Active Substance: ESCITALOPRAM OXALATE
     Dosage: 10 ML, UNK
     Route: 048
     Dates: start: 20150630
  4. GENTAMICIN. [Concomitant]
     Active Substance: GENTAMICIN
     Dosage: 325 MG, UNK
     Route: 042
     Dates: start: 20150720, end: 20150721
  5. PLATELETS [Concomitant]
     Active Substance: HUMAN PLATELET, ALLOGENIC
     Dosage: 1 UNK, UNK
     Route: 042
     Dates: start: 20150711, end: 20150729
  6. PARACETAMOL [Concomitant]
     Active Substance: ACETAMINOPHEN
     Dosage: 500 MG, UNK
     Route: 048
     Dates: start: 20150717
  7. SENNA [Concomitant]
     Active Substance: SENNA LEAF\SENNOSIDES\SENNOSIDES A AND B
     Dosage: 7.5 MG, UNK
     Route: 048
     Dates: start: 20150702
  8. POSACONAZOLE [Concomitant]
     Active Substance: POSACONAZOLE
     Dosage: 300 MG, UNK
     Route: 048
     Dates: start: 20150630
  9. MEROPENEM. [Concomitant]
     Active Substance: MEROPENEM
     Dosage: 1 G, UNK
     Route: 042
     Dates: start: 20150720, end: 20150724
  10. LACTULOSE. [Concomitant]
     Active Substance: LACTULOSE
     Dosage: 10 ML, UNK
     Route: 048
     Dates: start: 20150630
  11. DEXAMETHASONE. [Concomitant]
     Active Substance: DEXAMETHASONE
     Dosage: 8-20 MG, UNK
     Route: 048
     Dates: start: 20150630, end: 20150728
  12. OXYNORM [Concomitant]
     Active Substance: OXYCODONE HYDROCHLORIDE
     Dosage: 5 MG, UNK
     Route: 048
     Dates: start: 20150630, end: 20150719
  13. BLINATUMOMAB [Suspect]
     Active Substance: BLINATUMOMAB
     Indication: ACUTE LYMPHOCYTIC LEUKAEMIA
     Dosage: 28 MUG, UNK
     Route: 041
     Dates: start: 20150630
  14. KIN [Concomitant]
     Dosage: 10 ML, UNK
     Route: 048
     Dates: start: 20150701
  15. VALACYCLOVIR [Concomitant]
     Active Substance: VALACYCLOVIR HYDROCHLORIDE
     Dosage: 500 MG, UNK
     Route: 048
     Dates: start: 20150630, end: 20150724
  16. ALLOPURINOL. [Concomitant]
     Active Substance: ALLOPURINOL
     Dosage: 300 MG, UNK
     Route: 048
     Dates: start: 20150630
  17. MYCOSTATIN [Concomitant]
     Active Substance: NYSTATIN
     Dosage: 1 ML, UNK
     Route: 048
     Dates: start: 20150701
  18. PIRITON [Concomitant]
     Active Substance: CHLORPHENIRAMINE MALEATE
     Dosage: 10 MG, UNK
     Route: 042
     Dates: start: 20150701
  19. RED BLOOD CELLS [Concomitant]
     Active Substance: HUMAN RED BLOOD CELL
     Dosage: 2 UNK, UNK
     Route: 042
     Dates: start: 20150719, end: 20150719
  20. LANSOPRAZOLE. [Concomitant]
     Active Substance: LANSOPRAZOLE
     Dosage: 30 MG, UNK
     Route: 048
     Dates: start: 20150630
  21. LACRILUBE [Concomitant]
     Dosage: UNK
     Route: 047
     Dates: start: 20150709
  22. ARCOXIA [Concomitant]
     Active Substance: ETORICOXIB
     Dosage: 60 MG, UNK
     Route: 048
     Dates: start: 20150717, end: 20150724
  23. TAZOCIN [Concomitant]
     Active Substance: PIPERACILLIN SODIUM\TAZOBACTAM SODIUM
     Dosage: 4.5 G, UNK
     Route: 042
     Dates: start: 20150711, end: 20150720
  24. SEPTRIN [Concomitant]
     Active Substance: SULFAMETHOXAZOLE\TRIMETHOPRIM
     Dosage: 960 MG, UNK
     Route: 048
     Dates: start: 20150630

REACTIONS (1)
  - Skin ulcer [Recovered/Resolved]

NARRATIVE: CASE EVENT DATE: 20150724
